FAERS Safety Report 11859935 (Version 1)
Quarter: 2015Q4

REPORT INFORMATION
  Report Type: Report from Study
  Country: US (occurrence: US)
  Receive Date: 20151222
  Receipt Date: 20151222
  Transmission Date: 20160305
  Serious: No
  Sender: FDA-Public Use
  Company Number: US-THERATECHNOLOGIES, INC.-TH-2015-00032

PATIENT
  Age: 49 Year
  Sex: Male

DRUGS (1)
  1. EGRIFTA [Suspect]
     Active Substance: TESAMORELIN
     Dosage: 1 DOSAGE FORMS
     Route: 058
     Dates: start: 201410, end: 201503

REACTIONS (5)
  - Dizziness [Recovered/Resolved]
  - Arthropathy [Recovering/Resolving]
  - Loose tooth [Recovered/Resolved]
  - Poor quality sleep [Recovered/Resolved]
  - Weight increased [Recovered/Resolved]

NARRATIVE: CASE EVENT DATE: 2014
